FAERS Safety Report 18359381 (Version 1)
Quarter: 2020Q4

REPORT INFORMATION
  Report Type: Spontaneous
  Country: ES (occurrence: ES)
  Receive Date: 20201008
  Receipt Date: 20201008
  Transmission Date: 20210114
  Serious: Yes (Hospitalization)
  Sender: FDA-Public Use
  Company Number: ES-ACCORD-204488

PATIENT
  Age: 84 Year
  Sex: Female

DRUGS (15)
  1. SEGURIL [Concomitant]
     Active Substance: FUROSEMIDE
     Dosage: 60 MG AT BREAKFAST
     Dates: start: 20180307
  2. MICALDEOS [Concomitant]
     Dosage: 1 TABLET AT MEAL
     Dates: start: 20180828
  3. OMEPRAZOLE. [Concomitant]
     Active Substance: OMEPRAZOLE
     Dosage: 20MG DESAYUNO
     Dates: start: 20150417
  4. PREDNISONE. [Concomitant]
     Active Substance: PREDNISONE
     Dosage: 5 MG AT BREAKFAST
     Dates: start: 20160810
  5. ALDACTONE [Concomitant]
     Active Substance: SPIRONOLACTONE
     Dosage: 25 MG AT BREAKFAST
     Dates: start: 20190816
  6. LORAZEPAM. [Concomitant]
     Active Substance: LORAZEPAM
     Indication: INSOMNIA
     Dosage: 1 MG AT NIGHT IF INSOMNIA
     Dates: start: 20160711
  7. METHOTREXATE. [Suspect]
     Active Substance: METHOTREXATE
     Indication: PRODUCT USED FOR UNKNOWN INDICATION
     Dosage: 15 MG / 14 DAYS
     Dates: start: 20190312
  8. EUCREAS [Concomitant]
     Active Substance: METFORMIN HYDROCHLORIDE\VILDAGLIPTIN
     Dosage: 1 TABLET / 12H
     Dates: start: 20190325
  9. SIMVASTATIN. [Concomitant]
     Active Substance: SIMVASTATIN
     Dosage: 10 MG AT DINNER
     Dates: start: 20120605
  10. ELIQUIS [Concomitant]
     Active Substance: APIXABAN
     Dosage: 2.5 MG / 12H
     Dates: start: 20180123
  11. EUTHYROX [Concomitant]
     Active Substance: LEVOTHYROXINE SODIUM
     Dosage: 50 MCG AT FASTING
     Dates: start: 20061204
  12. BISOPROLOL [Concomitant]
     Active Substance: BISOPROLOL
     Dosage: 2.5 MG AT MEAL
     Dates: start: 20180123
  13. TARGIN [Concomitant]
     Active Substance: NALOXONE HYDROCHLORIDE\OXYCODONE HYDROCHLORIDE
     Dosage: 1 TABLET AT MEAL
     Dates: start: 20140624
  14. TOUJEO [Concomitant]
     Active Substance: INSULIN GLARGINE
     Dosage: 8 IU AT MEAL
     Dates: start: 20190405
  15. FLIXOTIDE ACCUHALER [Concomitant]
     Active Substance: FLUTICASONE PROPIONATE
     Dosage: 1 INH / 12H
     Dates: start: 20040927

REACTIONS (3)
  - Hepatic enzyme increased [Recovering/Resolving]
  - Pancytopenia [Recovered/Resolved]
  - Oral candidiasis [Recovered/Resolved]

NARRATIVE: CASE EVENT DATE: 20191019
